FAERS Safety Report 4510359-2 (Version None)
Quarter: 2004Q4

REPORT INFORMATION
  Report Type: 
  Country: None (occurrence: None)
  Receive Date: 20041122
  Receipt Date: 20041115
  Transmission Date: 20050328
  Serious: Yes (Hospitalization)
  Sender: FDA-Public Use
  Company Number: 200111843BWH

PATIENT
  Age: 61 Year
  Sex: Female
  Weight: 68.0396 kg

DRUGS (11)
  1. MOXIFLOXACIN IV (MOXIFLOXACIN) [Suspect]
     Indication: ABDOMINAL INFECTION
     Dosage: 400 MG, QD, INTRAVENOUS
     Route: 042
     Dates: start: 20010424, end: 20040426
  2. MOXIFLOXACIN PO (MOXIFLOXACIN) [Suspect]
     Indication: ABDOMINAL INFECTION
     Dosage: 400 MG, QD, ORAL
     Route: 048
     Dates: start: 20010427, end: 20010428
  3. PERCOCET [Concomitant]
  4. NITROGLYCERIN [Concomitant]
  5. LOPRESSOR [Concomitant]
  6. ZANTAC [Concomitant]
  7. METAMUCIL-2 [Concomitant]
  8. K-DUR [Concomitant]
  9. QUESTRAN [Concomitant]
  10. TYLENOL (CAPLET) [Concomitant]
  11. MORPHINE [Concomitant]

REACTIONS (13)
  - APPENDICITIS PERFORATED [None]
  - BACTEROIDES INFECTION [None]
  - BLOOD CULTURE POSITIVE [None]
  - BLOOD GLUCOSE INCREASED [None]
  - CAROTID ARTERY OCCLUSION [None]
  - CHILLS [None]
  - DIVERTICULUM INTESTINAL [None]
  - EFFUSION [None]
  - HAEMATOCRIT DECREASED [None]
  - HAEMOGLOBIN DECREASED [None]
  - LUNG INFILTRATION [None]
  - POST PROCEDURAL COMPLICATION [None]
  - PYREXIA [None]
